FAERS Safety Report 6492229-6 (Version None)
Quarter: 2009Q4

REPORT INFORMATION
  Report Type: 
  Country: None (occurrence: None)
  Receive Date: 20091214
  Receipt Date: 20091202
  Transmission Date: 20100525
  Serious: Yes (Other)
  Sender: FDA-Public Use
  Company Number: US-JNJFOC-20091201063

PATIENT
  Age: 10 Year
  Sex: Female

DRUGS (3)
  1. INFLIXIMAB [Suspect]
     Route: 042
  2. INFLIXIMAB [Suspect]
     Indication: UVEITIS
     Route: 042
  3. METHOTREXATE [Concomitant]
     Indication: UVEITIS

REACTIONS (1)
  - VITREOUS HAEMORRHAGE [None]
